FAERS Safety Report 24683334 (Version 1)
Quarter: 2024Q4

REPORT INFORMATION
  Report Type: Spontaneous
  Country: KR (occurrence: KR)
  Receive Date: 20241201
  Receipt Date: 20241201
  Transmission Date: 20250115
  Serious: Yes (Other)
  Sender: BRISTOL-MYERS SQUIBB COMPANY
  Company Number: KR-BRISTOL-MYERS SQUIBB COMPANY-2024-186084

PATIENT
  Age: 79 Year
  Sex: Female
  Weight: 53 kg

DRUGS (10)
  1. ELIQUIS [Suspect]
     Active Substance: APIXABAN
     Indication: Vertebrobasilar insufficiency
     Dates: start: 20210207
  2. CHOLINE ALFOSCERATE [Concomitant]
     Active Substance: CHOLINE ALFOSCERATE
     Indication: Cerebral disorder
     Dates: start: 20150119, end: 20210929
  3. IBUPROFEN ARGININE [Concomitant]
     Active Substance: IBUPROFEN ARGININE
     Indication: Vertebrobasilar insufficiency
     Dates: start: 20210322
  4. DIGOXIN [Concomitant]
     Active Substance: DIGOXIN
     Indication: Cardiac failure chronic
     Dates: start: 2021
  5. ALMAGATE [Concomitant]
     Active Substance: ALMAGATE
     Indication: Gastrooesophageal reflux disease
     Dates: start: 2021
  6. REBAMIPIDE [Concomitant]
     Active Substance: REBAMIPIDE
     Indication: Gastrooesophageal reflux disease
     Dates: start: 20210210, end: 20210929
  7. REBAMIPIDE [Concomitant]
     Active Substance: REBAMIPIDE
     Dates: start: 20210930
  8. ATORVASTATIN CALCIUM [Concomitant]
     Active Substance: ATORVASTATIN CALCIUM
     Indication: Prophylaxis
     Dates: start: 20200504
  9. LANSOPRAZOLE [Concomitant]
     Active Substance: LANSOPRAZOLE
     Indication: Gastrooesophageal reflux disease
     Dates: start: 20210205
  10. BISOPROLOL FUMARATE [Concomitant]
     Active Substance: BISOPROLOL FUMARATE
     Indication: Cardiac failure chronic
     Dates: start: 20210205

REACTIONS (2)
  - Diabetes mellitus [Not Recovered/Not Resolved]
  - Off label use [Unknown]

NARRATIVE: CASE EVENT DATE: 20210830
